FAERS Safety Report 7036254-5 (Version None)
Quarter: 2010Q4

REPORT INFORMATION
  Report Type: 
  Country: None (occurrence: None)
  Receive Date: 20101008
  Receipt Date: 20100928
  Transmission Date: 20110411
  Serious: Yes (Hospitalization, Other)
  Sender: FDA-Public Use
  Company Number: BR-ABBOTT-09P-020-0615803-00

PATIENT
  Sex: Female
  Weight: 78 kg

DRUGS (19)
  1. HUMIRA [Suspect]
     Indication: RHEUMATOID ARTHRITIS
     Route: 058
     Dates: end: 20090801
  2. HUMIRA [Suspect]
     Dates: end: 20100101
  3. HUMIRA [Suspect]
     Dates: start: 20100201
  4. PROPRANOLOL [Concomitant]
     Indication: ARRHYTHMIA
     Route: 048
     Dates: start: 20030101
  5. CALCIUM CARBONATE/VITAMIN D3 [Concomitant]
     Indication: OSTEOPOROSIS
     Dosage: 2 PER DAY
     Route: 048
     Dates: start: 20070101
  6. CINNARIZINE [Concomitant]
     Indication: LABYRINTHITIS
     Dosage: 2 PER DAY
     Route: 048
  7. DIPYRONE [Concomitant]
     Indication: PAIN
     Dosage: 2 TABLETS/DAY
     Route: 048
  8. PREDNISONE [Concomitant]
     Indication: ARTHRITIS
     Dosage: .5 PER DAY
     Dates: start: 20080101
  9. PREDNISONE [Concomitant]
     Route: 048
     Dates: start: 20090101
  10. SIMVASTATIN [Concomitant]
     Indication: LABYRINTHITIS
     Route: 048
     Dates: start: 20030101
  11. METICORTEN [Concomitant]
     Indication: ARTHRITIS
     Route: 048
     Dates: start: 19850101, end: 20080101
  12. METAMIZOLE [Concomitant]
     Indication: PAIN
     Route: 048
     Dates: start: 20030101
  13. NIMESULIDE [Concomitant]
     Indication: PAIN
     Route: 048
     Dates: start: 20090101
  14. RANITIDINE [Concomitant]
     Indication: PAIN
     Route: 048
     Dates: start: 20090101
  15. RANITIDINE [Concomitant]
     Indication: GASTROINTESTINAL DISORDER
  16. OMEPRAZOLE [Concomitant]
     Indication: GASTRIC DISORDER
     Route: 048
     Dates: start: 20100101
  17. OMEPRAZOLE [Concomitant]
     Indication: PROPHYLAXIS
  18. UNKNOWN MEDICATION [Concomitant]
     Indication: ANAEMIA
     Route: 042
  19. CALCIUM CARBONATE+D VITAMIN [Concomitant]
     Indication: OSTEOPOROSIS
     Dates: start: 20080101

REACTIONS (15)
  - ABDOMINAL HERNIA [None]
  - ABDOMINAL PAIN [None]
  - ABDOMINAL PAIN LOWER [None]
  - ANAEMIA [None]
  - BONE EROSION [None]
  - DYSURIA [None]
  - HIATUS HERNIA [None]
  - HYPERTENSION [None]
  - KIDNEY INFECTION [None]
  - MOBILITY DECREASED [None]
  - NEPHROLITHIASIS [None]
  - OBSTRUCTIVE UROPATHY [None]
  - PAIN IN EXTREMITY [None]
  - TRANSFUSION [None]
  - URINARY TRACT INFECTION [None]
